FAERS Safety Report 15691452 (Version 1)
Quarter: 2018Q4

REPORT INFORMATION
  Report Type: Spontaneous
  Country: AU (occurrence: AU)
  Receive Date: 20181205
  Receipt Date: 20181205
  Transmission Date: 20190205
  Serious: Yes (Hospitalization)
  Sender: FDA-Public Use
  Company Number: AU-PURDUE PHARMA-GBR-2018-0062149

PATIENT
  Sex: Female

DRUGS (1)
  1. DILAUDID [Suspect]
     Active Substance: HYDROMORPHONE HYDROCHLORIDE
     Indication: PRODUCT USED FOR UNKNOWN INDICATION
     Dosage: 0.1 MG, UNK (ONE DAY)
     Route: 065
     Dates: start: 20181127, end: 20181127

REACTIONS (1)
  - Stupor [Recovered/Resolved]

NARRATIVE: CASE EVENT DATE: 20181127
